FAERS Safety Report 23334093 (Version 2)
Quarter: 2024Q1

REPORT INFORMATION
  Report Type: Report from Study
  Country: US (occurrence: US)
  Receive Date: 20231223
  Receipt Date: 20240204
  Transmission Date: 20240409
  Serious: Yes (Death, Hospitalization, Other)
  Sender: FDA-Public Use
  Company Number: US-ACADIA PHARMACEUTICALS INC.-ACA-2023-PIM-005798

PATIENT
  Age: 89 Year
  Sex: Male

DRUGS (12)
  1. NUPLAZID [Suspect]
     Active Substance: PIMAVANSERIN TARTRATE
     Indication: Hallucination
     Dosage: 10 MILLIGRAM, QD
     Route: 048
     Dates: start: 20231120, end: 20231203
  2. LUNESTA [Concomitant]
     Active Substance: ESZOPICLONE
     Dosage: 3 MILLIGRAM
  3. ARICEPT [Concomitant]
     Active Substance: DONEPEZIL HYDROCHLORIDE
     Dosage: 10 MILLIGRAM
  4. SINEMET [Concomitant]
     Active Substance: CARBIDOPA\LEVODOPA
     Dosage: 25/100 MG
  5. VIMPAT [Concomitant]
     Active Substance: LACOSAMIDE
     Dosage: 200 MILLIGRAM, BID
  6. CRESTOR [Concomitant]
     Active Substance: ROSUVASTATIN CALCIUM
     Dosage: 5 MILLIGRAM
  7. ZETIA [Concomitant]
     Active Substance: EZETIMIBE
     Dosage: 10 MILLIGRAM
  8. PRADAXA [Concomitant]
     Active Substance: DABIGATRAN ETEXILATE MESYLATE
     Dosage: 150 MILLIGRAM
  9. BUSPAR [Concomitant]
     Active Substance: BUSPIRONE HYDROCHLORIDE
     Dosage: 5 MILLIGRAM
  10. CARVEDILOL [Concomitant]
     Active Substance: CARVEDILOL
     Dosage: 3.125 MG BID
  11. CEPHALEXIN [Concomitant]
     Active Substance: CEPHALEXIN
     Dosage: 500 MILLIGRAM, QID
  12. HYDROMORPHONE [Concomitant]
     Active Substance: HYDROMORPHONE
     Dosage: IV HYDROMORPHONE P.C.A.

REACTIONS (4)
  - Dementia Alzheimer^s type [Recovered/Resolved]
  - Ischaemic stroke [Recovered/Resolved]
  - Encephalopathy [Recovered/Resolved]
  - Clostridium difficile colitis [Recovered/Resolved]

NARRATIVE: CASE EVENT DATE: 20231130
